FAERS Safety Report 9369415 (Version 1)
Quarter: 2013Q2

REPORT INFORMATION
  Report Type: Spontaneous
  Country: DE (occurrence: DE)
  Receive Date: 20130626
  Receipt Date: 20130626
  Transmission Date: 20140414
  Serious: Yes (Other)
  Sender: FDA-Public Use
  Company Number: DE-ROCHE-1223857

PATIENT
  Sex: Female
  Weight: 62 kg

DRUGS (6)
  1. MABTHERA [Suspect]
     Indication: MULTIPLE SCLEROSIS
     Dosage: FIRST ADMINISTRATION OF RITUXIMAB
     Route: 042
     Dates: start: 20100515, end: 20100515
  2. MABTHERA [Suspect]
     Indication: OFF LABEL USE
     Dosage: SECOND CYCLE OF RITUXIMAB
     Route: 042
     Dates: start: 20111121, end: 20111121
  3. MABTHERA [Suspect]
     Dosage: THIRD CYCLE OF RITUXIMAB
     Route: 042
     Dates: start: 20130201, end: 20130201
  4. SOLU-DECORTIN H [Concomitant]
     Indication: PREMEDICATION
     Route: 042
     Dates: start: 20130201, end: 20130201
  5. FENISTIL (GERMANY) [Concomitant]
     Indication: PREMEDICATION
     Route: 042
     Dates: start: 20130201, end: 20130201
  6. PARACETAMOL [Concomitant]
     Indication: PREMEDICATION
     Route: 042
     Dates: start: 20130201, end: 20130201

REACTIONS (2)
  - Oedema peripheral [Not Recovered/Not Resolved]
  - Weight increased [Not Recovered/Not Resolved]
